FAERS Safety Report 24608303 (Version 1)
Quarter: 2024Q4

REPORT INFORMATION
  Report Type: Report from Study
  Country: DE (occurrence: DE)
  Receive Date: 20241112
  Receipt Date: 20241112
  Transmission Date: 20250115
  Serious: Yes (Death)
  Sender: AUROBINDO
  Company Number: DE-CHEPLA-2024013589

PATIENT
  Age: 59 Year
  Sex: Male

DRUGS (11)
  1. CEFTRIAXONE [Suspect]
     Active Substance: CEFTRIAXONE
     Indication: Antibiotic therapy
     Dosage: UNK
     Route: 042
  2. MEROPENEM [Suspect]
     Active Substance: MEROPENEM
     Indication: Antibiotic therapy
     Dosage: UNK
     Route: 065
  3. PIPERACILLIN AND TAZOBACTAM [Suspect]
     Active Substance: PIPERACILLIN SODIUM\TAZOBACTAM SODIUM
     Indication: Antibiotic therapy
     Dosage: UNK
     Route: 065
  4. AMPHOTERICIN B [Suspect]
     Active Substance: AMPHOTERICIN B
     Indication: Mucormycosis
     Dosage: UNK
     Route: 065
  5. PREDNISOLONE [Suspect]
     Active Substance: PREDNISOLONE
     Indication: Ophthalmoplegia
     Dosage: 250 MILLIGRAM, TWO TIMES A DAY
     Route: 065
  6. NALOXONE HYDROCHLORIDE\TILIDINE HYDROCHLORIDE [Suspect]
     Active Substance: NALOXONE HYDROCHLORIDE\TILIDINE HYDROCHLORIDE
     Indication: Headache
     Dosage: UNK
     Route: 065
  7. METAMIZOLE [Suspect]
     Active Substance: METAMIZOLE
     Indication: Headache
     Dosage: UNK
     Route: 065
  8. PIRITRAMIDE [Suspect]
     Active Substance: PIRITRAMIDE
     Indication: Headache
     Dosage: UNK
     Route: 065
  9. HEPARIN [Suspect]
     Active Substance: HEPARIN SODIUM
     Indication: Cavernous sinus thrombosis
     Dosage: UNK
     Route: 065
  10. VANCOMYCIN [Suspect]
     Active Substance: VANCOMYCIN
     Indication: Antibiotic therapy
     Dosage: UNK
     Route: 065
  11. METRONIDAZOLE [Suspect]
     Active Substance: METRONIDAZOLE
     Indication: Antibiotic therapy
     Dosage: UNK
     Route: 065

REACTIONS (1)
  - Cerebral infarction [Fatal]
